FAERS Safety Report 8251835-9 (Version None)
Quarter: 2012Q2

REPORT INFORMATION
  Report Type: 
  Country: None (occurrence: None)
  Receive Date: 20120402
  Receipt Date: 20120330
  Transmission Date: 20120825
  Serious: No
  Sender: FDA-Public Use
  Company Number: US-BAYER-2012-031665

PATIENT
  Age: 41 Year
  Sex: Female

DRUGS (6)
  1. ADVAIR DISKUS 100/50 [Concomitant]
  2. FLOVENT [Concomitant]
  3. AVELOX [Suspect]
     Indication: PNEUMONIA
     Dosage: 400 MG, QD
     Route: 048
     Dates: start: 20120227, end: 20120327
  4. ALLEGRA [Concomitant]
  5. ALBUTEROL [Concomitant]
  6. FLONASE [Concomitant]

REACTIONS (11)
  - VISUAL IMPAIRMENT [None]
  - ERYTHEMA [None]
  - OCULAR DISCOMFORT [None]
  - MUSCULAR WEAKNESS [None]
  - THROAT TIGHTNESS [None]
  - HEADACHE [None]
  - TREMOR [None]
  - PAIN IN EXTREMITY [None]
  - MOTOR DYSFUNCTION [None]
  - TENDON PAIN [None]
  - VISION BLURRED [None]
